FAERS Safety Report 11626107 (Version 4)
Quarter: 2017Q3

REPORT INFORMATION
  Report Type: Report from Study
  Country: CA (occurrence: CA)
  Receive Date: 20151013
  Receipt Date: 20170929
  Transmission Date: 20171127
  Serious: Yes (Other)
  Sender: FDA-Public Use
  Company Number: CA-SA-2015SA033995

PATIENT
  Age: 34 Year
  Sex: Female
  Weight: 59 kg

DRUGS (12)
  1. PANTOLOC [Concomitant]
     Active Substance: PANTOPRAZOLE SODIUM
     Indication: PREMEDICATION
     Dosage: FOR 07 DAYS
     Route: 048
     Dates: start: 20150316
  2. HYDROCHLOROTHIAZIDE. [Concomitant]
     Active Substance: HYDROCHLOROTHIAZIDE
     Route: 048
  3. VITAMIN D [Concomitant]
     Active Substance: CHOLECALCIFEROL
  4. LEMTRADA [Suspect]
     Active Substance: ALEMTUZUMAB
     Indication: RELAPSING-REMITTING MULTIPLE SCLEROSIS
     Route: 041
     Dates: start: 20150318, end: 20150320
  5. AMANTADINE. [Concomitant]
     Active Substance: AMANTADINE HYDROCHLORIDE
     Route: 048
  6. ACYCLOVIR. [Concomitant]
     Active Substance: ACYCLOVIR
     Indication: ANTIVIRAL TREATMENT
     Dosage: FOR 35 DAYS
     Route: 048
     Dates: start: 20150316
  7. LEMTRADA [Suspect]
     Active Substance: ALEMTUZUMAB
     Indication: RELAPSING-REMITTING MULTIPLE SCLEROSIS
     Route: 041
     Dates: start: 20150323, end: 20150323
  8. DIMENHYDRINATE. [Concomitant]
     Active Substance: DIMENHYDRINATE
     Indication: PREMEDICATION
     Dosage: DOSE: 25-50 MG; Q4H PRN; PO/IV?FOR 05 DAYS
     Dates: start: 20150316
  9. LEMTRADA [Suspect]
     Active Substance: ALEMTUZUMAB
     Indication: RELAPSING-REMITTING MULTIPLE SCLEROSIS
     Route: 041
     Dates: start: 20150316, end: 20150316
  10. DIPHENHYDRAMINE. [Concomitant]
     Active Substance: DIPHENHYDRAMINE
     Indication: PREMEDICATION
     Dosage: DOSE: 25-50 MG; Q4-6H PRN; PO/IV/IM FOR 05 DAYS
     Dates: start: 20150316
  11. AMLODIPINE [Concomitant]
     Active Substance: AMLODIPINE BESYLATE
     Dosage: ON HOLD DURING INFUSION WEEK
     Route: 048
  12. PREDNISONE. [Concomitant]
     Active Substance: PREDNISONE
     Indication: ANTIINFLAMMATORY THERAPY
     Route: 048
     Dates: start: 20150316, end: 20150323

REACTIONS (23)
  - Malaise [Unknown]
  - Headache [Unknown]
  - Cold sweat [Unknown]
  - Hypertension [Unknown]
  - Rash [Unknown]
  - Throat irritation [Not Recovered/Not Resolved]
  - Blood potassium decreased [Unknown]
  - Infusion related reaction [Unknown]
  - Erythema [Recovering/Resolving]
  - Back pain [Unknown]
  - Loss of consciousness [Recovering/Resolving]
  - Dry mouth [Unknown]
  - Pruritus [Recovered/Resolved]
  - Gait disturbance [Not Recovered/Not Resolved]
  - White blood cell count increased [Unknown]
  - Motor dysfunction [Not Recovered/Not Resolved]
  - Cough [Recovered/Resolved]
  - Dry throat [Unknown]
  - Heart rate increased [Unknown]
  - Body temperature increased [Recovered/Resolved]
  - Blood pressure decreased [Unknown]
  - Dizziness [Unknown]
  - Hypoaesthesia [Not Recovered/Not Resolved]

NARRATIVE: CASE EVENT DATE: 2015
